FAERS Safety Report 7443676-7 (Version None)
Quarter: 2011Q2

REPORT INFORMATION
  Report Type: 
  Country: None (occurrence: None)
  Receive Date: 20110428
  Receipt Date: 20110420
  Transmission Date: 20111010
  Serious: Yes (Hospitalization)
  Sender: FDA-Public Use
  Company Number: FR-GENENTECH-317342

PATIENT
  Age: 76 Year
  Sex: Female
  Weight: 73 kg

DRUGS (1)
  1. MABTHERA [Suspect]
     Indication: PRODUCT USED FOR UNKNOWN INDICATION
     Dosage: UNK
     Route: 042
     Dates: start: 20100707, end: 20100721

REACTIONS (1)
  - CYTOLYTIC HEPATITIS [None]
